FAERS Safety Report 25113558 (Version 2)
Quarter: 2025Q2

REPORT INFORMATION
  Report Type: Spontaneous
  Country: US (occurrence: US)
  Receive Date: 20250324
  Receipt Date: 20250418
  Transmission Date: 20250717
  Serious: No
  Sender: MYLAN
  Company Number: US-MYLANLABS-2025M1021453

PATIENT
  Sex: Female

DRUGS (1)
  1. TYRVAYA [Suspect]
     Active Substance: VARENICLINE TARTRATE
     Indication: Product used for unknown indication

REACTIONS (2)
  - Nasal discomfort [Unknown]
  - Product delivery mechanism issue [Unknown]

NARRATIVE: CASE EVENT DATE: 20250101
